FAERS Safety Report 23941351 (Version 1)
Quarter: 2024Q2

REPORT INFORMATION
  Report Type: Spontaneous
  Country: US (occurrence: US)
  Receive Date: 20240605
  Receipt Date: 20240605
  Transmission Date: 20240716
  Serious: Yes (Hospitalization, Other)
  Sender: FDA-Public Use
  Company Number: US-MLMSERVICE-20240515-PI062759-00059-1

PATIENT
  Age: 62 Year
  Sex: Male

DRUGS (2)
  1. AZATHIOPRINE [Suspect]
     Active Substance: AZATHIOPRINE
     Indication: Colitis ulcerative
     Dosage: 100 MILLIGRAM, QD
     Route: 065
  2. USTEKINUMAB [Suspect]
     Active Substance: USTEKINUMAB
     Indication: Colitis ulcerative
     Dosage: 90 MILLIGRAM
     Route: 058

REACTIONS (5)
  - Meningitis listeria [Recovered/Resolved]
  - Spontaneous bacterial peritonitis [Recovered/Resolved]
  - Listeriosis [Recovered/Resolved]
  - Hyponatraemia [Unknown]
  - Sepsis [Recovered/Resolved]
